FAERS Safety Report 5018473-2 (Version None)
Quarter: 2006Q2

REPORT INFORMATION
  Report Type: 
  Country: None (occurrence: None)
  Receive Date: 20060530
  Receipt Date: 20050420
  Transmission Date: 20061013
  Serious: Yes (Other)
  Sender: FDA-Public Use
  Company Number: 2005063066

PATIENT
  Age: 40 Year
  Sex: Female
  Weight: 70 kg

DRUGS (3)
  1. LYRICA [Suspect]
     Indication: NEURALGIA
     Dosage: 150 MG (75 MG, 2 IN 1 D), ORAL
     Route: 048
  2. FLUOXETINE [Concomitant]
  3. OXYCODONE HCL [Concomitant]

REACTIONS (3)
  - DEPRESSED MOOD [None]
  - IRRITABILITY [None]
  - THINKING ABNORMAL [None]
